FAERS Safety Report 21125963 (Version 1)
Quarter: 2022Q3

REPORT INFORMATION
  Report Type: Spontaneous
  Country: US (occurrence: None)
  Receive Date: 20220723
  Receipt Date: 20220723
  Transmission Date: 20221027
  Serious: No
  Sender: FDA-Public Use
  Company Number: None

PATIENT
  Age: 62 Year
  Sex: Male
  Weight: 135 kg

DRUGS (1)
  1. SPIRIVA RESPIMAT [Suspect]
     Active Substance: TIOTROPIUM BROMIDE
     Indication: Chronic obstructive pulmonary disease
     Dosage: OTHER QUANTITY : 2 PUFF(S);?FREQUENCY : DAILY;?
     Route: 055
     Dates: start: 20220719, end: 20220721

REACTIONS (5)
  - Dry mouth [None]
  - Dry throat [None]
  - Speech disorder [None]
  - Laryngitis [None]
  - Therapy interrupted [None]

NARRATIVE: CASE EVENT DATE: 20220721
